FAERS Safety Report 12147394 (Version 1)
Quarter: 2016Q1

REPORT INFORMATION
  Report Type: Spontaneous
  Country: US (occurrence: US)
  Receive Date: 20160304
  Receipt Date: 20160304
  Transmission Date: 20160526
  Serious: Yes (Other)
  Sender: FDA-Public Use
  Company Number: US-PFIZER INC-2016119986

PATIENT
  Age: 47 Year
  Sex: Male
  Weight: 92.97 kg

DRUGS (6)
  1. NORCO [Concomitant]
     Active Substance: ACETAMINOPHEN\HYDROCODONE BITARTRATE
     Dosage: [HYDROCODONE BITARTRATE 10MG, PARACETAMOL 325MG], 3X/DAY (EVERY 8 HOURS PRN)
  2. RED YEAST RICE [Concomitant]
     Active Substance: DIETARY SUPPLEMENT
     Dosage: 600 MG, DAILY
  3. BABY ASPIRIN [Concomitant]
     Active Substance: ASPIRIN
     Dosage: 81 MG, 1X/DAY
  4. LYRICA [Suspect]
     Active Substance: PREGABALIN
     Dosage: 100 MG, 3X/DAY (EVERY 8 HOURS)
  5. LISINOPRIL. [Concomitant]
     Active Substance: LISINOPRIL
     Dosage: 40 MG, DAILY
  6. PARAFFIN [Concomitant]
     Active Substance: PARAFFIN
     Indication: HAND DEFORMITY
     Dosage: 3-4 TIMES A DAY

REACTIONS (19)
  - Joint stiffness [Unknown]
  - Hypoaesthesia [Unknown]
  - Back pain [Unknown]
  - Peripheral swelling [Unknown]
  - Frustration tolerance decreased [Unknown]
  - Decreased activity [Unknown]
  - Asthenia [Unknown]
  - Pain in extremity [Unknown]
  - Paraesthesia [Unknown]
  - Musculoskeletal pain [Unknown]
  - Myalgia [Unknown]
  - Joint swelling [Unknown]
  - Pain [Unknown]
  - Crush injury [Unknown]
  - Arthralgia [Unknown]
  - Disturbance in attention [Unknown]
  - Condition aggravated [Unknown]
  - Middle insomnia [Unknown]
  - Muscle spasms [Unknown]
